FAERS Safety Report 8976020 (Version 2)
Quarter: 2013Q1

REPORT INFORMATION
  Report Type: Report from Study
  Country: US (occurrence: US)
  Receive Date: 20121219
  Receipt Date: 20130207
  Transmission Date: 20140127
  Serious: Yes (Hospitalization)
  Sender: FDA-Public Use
  Company Number: US-GILEAD-2012-0066298

PATIENT
  Age: 47 Year
  Sex: Male

DRUGS (7)
  1. EFAVIRENZ/EMTRICITABINE/TENOFOVIR DISOPROXIL FUMARATE [Suspect]
     Indication: HIV INFECTION
     Dosage: 1 DF, QD
     Route: 048
     Dates: start: 20100722, end: 20120111
  2. ABACAVIR [Concomitant]
     Indication: HIV INFECTION
     Dosage: 300 MG, BID
     Route: 048
     Dates: start: 20120216
  3. EFAVIRENZ [Concomitant]
     Indication: HIV INFECTION
     Dosage: 600 MG, QD
     Route: 048
     Dates: start: 20120216
  4. EMTRICITABINE [Concomitant]
     Indication: HIV INFECTION
     Dosage: 200 MG, QD
     Route: 048
     Dates: start: 20120216
  5. CRESTOR [Concomitant]
  6. HYDROCHLOROTHIAZIDE [Concomitant]
  7. NORVASC [Concomitant]

REACTIONS (2)
  - Diabetic nephropathy [Not Recovered/Not Resolved]
  - Renal failure acute [Not Recovered/Not Resolved]
